FAERS Safety Report 4640334-9 (Version None)
Quarter: 2005Q2

REPORT INFORMATION
  Report Type: 
  Country: None (occurrence: None)
  Receive Date: 20050419
  Receipt Date: 20050407
  Transmission Date: 20051028
  Serious: Yes (Hospitalization, Other)
  Sender: FDA-Public Use
  Company Number: 04-000451

PATIENT
  Age: 34 Year
  Sex: Female
  Weight: 63.5 kg

DRUGS (4)
  1. OVCON  35  28 [Suspect]
     Indication: MENSTRUATION IRREGULAR
     Dosage: 35/400 UG QD, ORAL
     Route: 048
     Dates: start: 20030701, end: 20030801
  2. PREVACID [Concomitant]
  3. EFFEXOR [Concomitant]
  4. XANAX [Concomitant]

REACTIONS (5)
  - BLOOD TEST ABNORMAL [None]
  - CONDITION AGGRAVATED [None]
  - CONVULSION [None]
  - CROHN'S DISEASE [None]
  - PANCREATITIS [None]
